FAERS Safety Report 17244161 (Version 1)
Quarter: 2020Q1

REPORT INFORMATION
  Report Type: Spontaneous
  Country: RO (occurrence: RO)
  Receive Date: 20200107
  Receipt Date: 20200107
  Transmission Date: 20200409
  Serious: Yes (Death, Hospitalization, Other)
  Sender: FDA-Public Use
  Company Number: RO-MYLANLABS-2020M1002240

PATIENT
  Age: 41 Year
  Sex: Female

DRUGS (3)
  1. TRASTUZUMAB. [Suspect]
     Active Substance: TRASTUZUMAB
     Indication: METASTASES TO CENTRAL NERVOUS SYSTEM
     Dosage: 3.6 MILLIGRAM/KILOGRAM, 1 DOSE/3 WEEKS
     Route: 065
     Dates: start: 201802
  2. LAPATINIB [Suspect]
     Active Substance: LAPATINIB
     Indication: METASTASES TO CENTRAL NERVOUS SYSTEM
     Dosage: 1250 MILLIGRAM, DAILY
     Route: 065
     Dates: start: 201602, end: 201802
  3. CAPECITABINE. [Suspect]
     Active Substance: CAPECITABINE
     Indication: METASTASES TO CENTRAL NERVOUS SYSTEM
     Dosage: 2000 MILLIGRAM/SQ. METER, DAILY
     Route: 065
     Dates: start: 201602

REACTIONS (2)
  - Disease progression [Fatal]
  - General physical health deterioration [Fatal]
